FAERS Safety Report 18632802 (Version 3)
Quarter: 2021Q1

REPORT INFORMATION
  Report Type: Spontaneous
  Country: MY (occurrence: MY)
  Receive Date: 20201218
  Receipt Date: 20210122
  Transmission Date: 20210419
  Serious: Yes (Hospitalization)
  Sender: FDA-Public Use
  Company Number: MY-PFIZER INC-2020489802

PATIENT
  Age: 23 Year
  Sex: Male

DRUGS (4)
  1. TETANUS TOXOID [Suspect]
     Active Substance: TETANUS TOXOIDS
     Indication: ANAPHYLACTIC SHOCK
     Dosage: 0.5 ML
     Route: 030
  2. CHLORPHENIRAMINE [CHLORPHENAMINE] [Suspect]
     Active Substance: CHLORPHENIRAMINE
     Indication: ANAPHYLACTIC SHOCK
     Dosage: 10 MG
     Route: 042
  3. HYDROCORTISONE SODIUM SUCCINATE [Suspect]
     Active Substance: HYDROCORTISONE SODIUM SUCCINATE
     Indication: ANAPHYLACTIC SHOCK
     Dosage: 200 MG
     Route: 042
  4. EPINEPHRINE. [Suspect]
     Active Substance: EPINEPHRINE
     Indication: ANAPHYLACTIC SHOCK
     Dosage: 0.5 MILLIGRAM (1:1000)
     Route: 030

REACTIONS (1)
  - Arteriospasm coronary [Recovered/Resolved]
